FAERS Safety Report 9619504 (Version 1)
Quarter: 2013Q4

REPORT INFORMATION
  Report Type: Report from Study
  Country: LB (occurrence: LB)
  Receive Date: 20131014
  Receipt Date: 20131014
  Transmission Date: 20140711
  Serious: Yes (Hospitalization)
  Sender: FDA-Public Use
  Company Number: LB-SA-2013SA101920

PATIENT
  Age: 61 Year
  Sex: Female

DRUGS (6)
  1. LANTUS [Suspect]
     Indication: TYPE 2 DIABETES MELLITUS
     Dosage: DOSE 10-20 U S/C DAILY
     Route: 058
     Dates: start: 201203, end: 201211
  2. ONGLYZA [Concomitant]
  3. MONO-TILDIEM [Concomitant]
  4. TRITACE [Concomitant]
  5. ATORVASTATIN [Concomitant]
  6. SOLOSTAR [Concomitant]
     Indication: DEVICE THERAPY
     Route: 058

REACTIONS (1)
  - Gastrectomy [Recovered/Resolved]
